FAERS Safety Report 25547565 (Version 1)
Quarter: 2025Q3

REPORT INFORMATION
  Report Type: Spontaneous
  Country: CN (occurrence: CN)
  Receive Date: 20250714
  Receipt Date: 20250714
  Transmission Date: 20251020
  Serious: Yes (Other)
  Sender: Unknown Manufacturer
  Company Number: CN-STRIDES ARCOLAB LIMITED-2025OS000011

PATIENT
  Age: 45 Year
  Sex: Male

DRUGS (2)
  1. ETOPOSIDE [Suspect]
     Active Substance: ETOPOSIDE
     Indication: Small cell lung cancer
     Route: 065
     Dates: start: 202303, end: 202307
  2. CISPLATIN [Concomitant]
     Active Substance: CISPLATIN
     Indication: Small cell lung cancer
     Route: 065
     Dates: start: 202303, end: 202307

REACTIONS (1)
  - Bronchial injury [None]

NARRATIVE: CASE EVENT DATE: 20230601
